FAERS Safety Report 18084935 (Version 4)
Quarter: 2020Q4

REPORT INFORMATION
  Report Type: Report from Study
  Country: CA (occurrence: CA)
  Receive Date: 20200729
  Receipt Date: 20201118
  Transmission Date: 20210113
  Serious: Yes (Other)
  Sender: FDA-Public Use
  Company Number: NVSC2020CA208345

PATIENT
  Age: 65 Year
  Sex: Female
  Weight: 68 kg

DRUGS (5)
  1. ERELZI [Suspect]
     Active Substance: ETANERCEPT-SZZS
     Dosage: 50 MG, QW  (2ND DOSE)
     Route: 058
     Dates: start: 20200723
  2. HYDROXYCHLOROQUINE [Concomitant]
     Active Substance: HYDROXYCHLOROQUINE
     Indication: PRODUCT USED FOR UNKNOWN INDICATION
     Dosage: UNK
     Route: 048
  3. PREDNISONE. [Concomitant]
     Active Substance: PREDNISONE
     Indication: RHEUMATOID ARTHRITIS
     Dosage: 2.5 MG, QD
     Route: 048
  4. SULFASALAZINE. [Concomitant]
     Active Substance: SULFASALAZINE
     Indication: PRODUCT USED FOR UNKNOWN INDICATION
     Dosage: UNK
     Route: 048
  5. ERELZI [Suspect]
     Active Substance: ETANERCEPT-SZZS
     Indication: RHEUMATOID ARTHRITIS
     Dosage: 50 MG, QW (FIRST DOSE)
     Route: 058
     Dates: start: 20200716

REACTIONS (4)
  - Musculoskeletal stiffness [Unknown]
  - Injection site pain [Unknown]
  - Psoriatic arthropathy [Unknown]
  - Inflammation [Unknown]

NARRATIVE: CASE EVENT DATE: 20200723
